FAERS Safety Report 18733595 (Version 2)
Quarter: 2021Q2

REPORT INFORMATION
  Report Type: Report from Study
  Country: AU (occurrence: AU)
  Receive Date: 20210113
  Receipt Date: 20210415
  Transmission Date: 20210717
  Serious: Yes (Other)
  Sender: FDA-Public Use
  Company Number: AU-REGENERON PHARMACEUTICALS, INC.-2021-12414

PATIENT

DRUGS (6)
  1. EYLEA [Suspect]
     Active Substance: AFLIBERCEPT
     Indication: NEOVASCULAR AGE-RELATED MACULAR DEGENERATION
     Dosage: 7 WEEKS NOW 6 WEEKS, LEFT EYE
     Route: 031
     Dates: start: 20200109
  2. EYLEA [Suspect]
     Active Substance: AFLIBERCEPT
     Dosage: 7 WEEKLY INTERVALS (OS)
     Route: 031
  3. EYLEA [Suspect]
     Active Substance: AFLIBERCEPT
     Dosage: 1 DF, Q4WK (OS)
     Route: 031
  4. EYLEA [Suspect]
     Active Substance: AFLIBERCEPT
     Dosage: 1 DF, Q4WK (OD)
     Route: 031
     Dates: start: 20201102
  5. EYLEA [Suspect]
     Active Substance: AFLIBERCEPT
     Dosage: 1 DF, ONCE (BILATERAL)
     Route: 031
     Dates: start: 202102, end: 202102
  6. EYLEA [Suspect]
     Active Substance: AFLIBERCEPT
     Dosage: 1 DF, Q4WK (OS)
     Route: 031

REACTIONS (9)
  - Neovascular age-related macular degeneration [Recovering/Resolving]
  - Visual impairment [Not Recovered/Not Resolved]
  - Choroidal neovascularisation [Recovered/Resolved]
  - Visual impairment [Recovering/Resolving]
  - Injection site discomfort [Recovered/Resolved]
  - Off label use [Unknown]
  - Eye oedema [Unknown]
  - Eye irritation [Recovered/Resolved]
  - Ocular discomfort [Unknown]

NARRATIVE: CASE EVENT DATE: 202005
